FAERS Safety Report 5599485-7 (Version None)
Quarter: 2007Q4

REPORT INFORMATION
  Report Type: 
  Country: None (occurrence: None)
  Receive Date: 20071231
  Receipt Date: 20070612
  Transmission Date: 20080405
  Serious: Yes (Hospitalization)
  Sender: FDA-Public Use
  Company Number: 157544USA

PATIENT
  Sex: Male

DRUGS (1)
  1. FUROSEMIDE TABLETS USP, 20 MG AND 40MG (FUROSEMIDE) [Suspect]

REACTIONS (3)
  - DRUG EFFECT DECREASED [None]
  - DYSPNOEA [None]
  - FLUID RETENTION [None]
